FAERS Safety Report 10398697 (Version 6)
Quarter: 2015Q2

REPORT INFORMATION
  Report Type: Spontaneous
  Country: US (occurrence: US)
  Receive Date: 20140821
  Receipt Date: 20150612
  Transmission Date: 20150821
  Serious: Yes (Other)
  Sender: FDA-Public Use
  Company Number: US-009507513-1408USA011022

PATIENT
  Age: 76 Year
  Sex: Male

DRUGS (1)
  1. NOXAFIL [Suspect]
     Active Substance: POSACONAZOLE
     Indication: COCCIDIOIDOMYCOSIS
     Dosage: STRENGTH: 200/5, 200 MG/5 MG/^TWICE DAILY^
     Route: 048
     Dates: start: 201307, end: 20141202

REACTIONS (10)
  - Photosensitivity reaction [Recovered/Resolved]
  - Drug eruption [Recovered/Resolved]
  - Coeliac disease [Unknown]
  - Skin necrosis [Unknown]
  - Lymphadenopathy [Unknown]
  - Raynaud^s phenomenon [Not Recovered/Not Resolved]
  - Tinea infection [Unknown]
  - Dermatitis herpetiformis [Recovered/Resolved]
  - Dermatitis [Unknown]
  - Exposure to toxic agent [Unknown]

NARRATIVE: CASE EVENT DATE: 2014
